FAERS Safety Report 12804930 (Version 2)
Quarter: 2017Q2

REPORT INFORMATION
  Report Type: Report from Study
  Country: CA (occurrence: CA)
  Receive Date: 20161004
  Receipt Date: 20170403
  Transmission Date: 20170830
  Serious: Yes (Hospitalization, Other)
  Sender: FDA-Public Use
  Company Number: CA-ORION CORPORATION ORION PHARMA-TREX2016-1859

PATIENT
  Age: 75 Year
  Sex: Male

DRUGS (16)
  1. METHOTREXATE (TRADE NAME UNKNOWN) [Suspect]
     Active Substance: METHOTREXATE
     Route: 065
  2. SPIRIVA [Concomitant]
     Active Substance: TIOTROPIUM BROMIDE MONOHYDRATE
     Route: 065
  3. TIOTROPIUM [Concomitant]
     Active Substance: TIOTROPIUM
     Route: 065
  4. NADOLOL. [Concomitant]
     Active Substance: NADOLOL
     Route: 065
  5. PHOSPHORUS [Concomitant]
     Active Substance: PHOSPHORUS
     Route: 065
  6. ADVAIR HFA [Concomitant]
     Active Substance: FLUTICASONE PROPIONATE\SALMETEROL XINAFOATE
     Route: 065
  7. SPIRONOLACTONE. [Concomitant]
     Active Substance: SPIRONOLACTONE
     Route: 065
  8. ENBREL [Suspect]
     Active Substance: ETANERCEPT
     Indication: RHEUMATOID ARTHRITIS
     Route: 058
     Dates: start: 20160706
  9. METFORMIN [Concomitant]
     Active Substance: METFORMIN HYDROCHLORIDE
     Route: 065
  10. IRON [Concomitant]
     Active Substance: IRON
     Route: 065
  11. SALBUTAMOL [Concomitant]
     Active Substance: ALBUTEROL
     Route: 065
  12. ENBREL [Suspect]
     Active Substance: ETANERCEPT
     Route: 058
     Dates: start: 201608
  13. SENNOSIDES. [Concomitant]
     Active Substance: SENNOSIDES
     Route: 065
  14. LACTULOSE. [Concomitant]
     Active Substance: LACTULOSE
     Route: 065
  15. FUROSEMIDE. [Concomitant]
     Active Substance: FUROSEMIDE
     Route: 065
  16. RABEPRAZOLE [Concomitant]
     Active Substance: RABEPRAZOLE
     Route: 065

REACTIONS (4)
  - Immunodeficiency [Recovered/Resolved with Sequelae]
  - Eye infection [Recovered/Resolved with Sequelae]
  - Hepatic failure [Recovered/Resolved with Sequelae]
  - Corneal thinning [Recovered/Resolved with Sequelae]

NARRATIVE: CASE EVENT DATE: 2016
